FAERS Safety Report 23755048 (Version 2)
Quarter: 2024Q2

REPORT INFORMATION
  Report Type: Spontaneous
  Country: US (occurrence: US)
  Receive Date: 20240418
  Receipt Date: 20240515
  Transmission Date: 20240715
  Serious: No
  Sender: FDA-Public Use
  Company Number: US-CTI BIOPHARMA-2024US04457

PATIENT
  Age: 59 Year
  Sex: Female

DRUGS (5)
  1. VONJO [Suspect]
     Active Substance: PACRITINIB
     Indication: Myelofibrosis
     Dosage: 200 MG, BID
     Route: 048
     Dates: start: 20240118
  2. VONJO [Suspect]
     Active Substance: PACRITINIB
     Dosage: 200 MG, TWICE DAILY
     Route: 048
  3. ZOLPIDEM [Concomitant]
     Active Substance: ZOLPIDEM TARTRATE
     Indication: Product used for unknown indication
  4. SYNTHROID [Concomitant]
     Active Substance: LEVOTHYROXINE SODIUM
     Indication: Product used for unknown indication
  5. CLONAZEPAM [Concomitant]
     Active Substance: CLONAZEPAM
     Indication: Product used for unknown indication

REACTIONS (9)
  - Abdominal pain upper [Recovered/Resolved]
  - Fatigue [Unknown]
  - Insomnia [Unknown]
  - Hypertension [Recovered/Resolved]
  - Haemoglobin decreased [Unknown]
  - Blood pressure increased [Unknown]
  - Red blood cell count decreased [Unknown]
  - Vomiting [Unknown]
  - Nausea [Unknown]
